FAERS Safety Report 18475283 (Version 2)
Quarter: 2020Q4

REPORT INFORMATION
  Report Type: Report from Study
  Country: CA (occurrence: CA)
  Receive Date: 20201107
  Receipt Date: 20201225
  Transmission Date: 20210114
  Serious: Yes (Other)
  Sender: FDA-Public Use
  Company Number: CA-TAKEDA-CA202013849

PATIENT
  Age: 6 Year
  Sex: Male
  Weight: 25 kg

DRUGS (5)
  1. IDURSULFASE [Suspect]
     Active Substance: IDURSULFASE
     Indication: MUCOPOLYSACCHARIDOSIS II
     Dosage: 12 MILLIGRAM, 1X/WEEK
     Route: 065
     Dates: start: 20191204
  2. IDURSULFASE [Suspect]
     Active Substance: IDURSULFASE
     Dosage: 12 MILLIGRAM, 1X/WEEK
     Route: 065
     Dates: start: 20200430
  3. TYNELOL [Concomitant]
     Active Substance: ACETAMINOPHEN
     Indication: PRODUCT USED FOR UNKNOWN INDICATION
  4. IDURSULFASE [Suspect]
     Active Substance: IDURSULFASE
     Dosage: 12 MILLIGRAM, 1X/WEEK
     Route: 065
     Dates: start: 20200416
  5. IDURSULFASE [Suspect]
     Active Substance: IDURSULFASE
     Dosage: 12 MILLIGRAM OR 2 VIALS, 1/WEEK
     Route: 065
     Dates: start: 20191204

REACTIONS (8)
  - Infusion site extravasation [Unknown]
  - Infusion related reaction [Unknown]
  - Heart rate decreased [Unknown]
  - Blood pressure increased [Unknown]
  - Movement disorder [Unknown]
  - Infusion site oedema [Recovered/Resolved]
  - Venous injury [Not Recovered/Not Resolved]
  - Poor venous access [Unknown]

NARRATIVE: CASE EVENT DATE: 20200416
